FAERS Safety Report 4829668-2 (Version None)
Quarter: 2005Q4

REPORT INFORMATION
  Report Type: 
  Country: None (occurrence: None)
  Receive Date: 20051116
  Receipt Date: 20050930
  Transmission Date: 20060501
  Serious: Yes (Other)
  Sender: FDA-Public Use
  Company Number: US-MERCK-0510USA01870

PATIENT
  Age: 57 Year
  Sex: Female
  Weight: 86 kg

DRUGS (16)
  1. VIOXX [Suspect]
     Indication: OSTEOARTHRITIS
     Route: 048
     Dates: start: 20000426
  2. VIOXX [Suspect]
     Route: 048
     Dates: end: 20030201
  3. BIAXIN [Concomitant]
     Route: 048
  4. COLYTE [Concomitant]
     Route: 048
  5. CYCLOBENZAPRINE HYDROCHLORIDE [Concomitant]
     Route: 048
  6. FLUOXETINE [Concomitant]
     Route: 048
  7. FUROSEMIDE [Concomitant]
     Route: 048
  8. GLUCOPHAGE [Concomitant]
     Route: 048
  9. INDERAL LA [Concomitant]
     Route: 048
  10. PHENERGAN TABLETS/SUPPOSITORIES [Concomitant]
     Route: 048
  11. PREMPRO [Concomitant]
     Route: 048
  12. PRILOSEC [Concomitant]
     Route: 048
  13. ACETAMINOPHEN AND PROPOXYPHENE NAPSYLATE [Concomitant]
     Route: 048
  14. HYDROCHLOROTHIAZIDE AND TRIAMTERENE [Concomitant]
     Route: 048
  15. TRIMOX [Concomitant]
     Route: 048
  16. ZESTRIL [Concomitant]
     Route: 048

REACTIONS (3)
  - BLOOD PRESSURE INCREASED [None]
  - ISCHAEMIC STROKE [None]
  - TRANSIENT ISCHAEMIC ATTACK [None]
